FAERS Safety Report 16835080 (Version 1)
Quarter: 2019Q3

REPORT INFORMATION
  Report Type: Spontaneous
  Country: US (occurrence: US)
  Receive Date: 20190920
  Receipt Date: 20190920
  Transmission Date: 20191005
  Serious: No
  Sender: FDA-Public Use
  Company Number: US-SA-2019SA259812

PATIENT
  Age: 56 Year
  Sex: Female

DRUGS (1)
  1. TOUJEO [Suspect]
     Active Substance: INSULIN GLARGINE
     Indication: TYPE 2 DIABETES MELLITUS
     Dosage: INJECTED BETWEEN THE 48 AND 52 MARK
     Route: 065

REACTIONS (6)
  - Blood glucose increased [Recovering/Resolving]
  - Dizziness [Unknown]
  - Incorrect dose administered [Recovering/Resolving]
  - Wrong product administered [Recovering/Resolving]
  - Headache [Unknown]
  - Product dose omission [Unknown]
